FAERS Safety Report 20258451 (Version 1)
Quarter: 2021Q4

REPORT INFORMATION
  Report Type: Spontaneous
  Country: US (occurrence: None)
  Receive Date: 20211229
  Receipt Date: 20211229
  Transmission Date: 20220304
  Serious: Yes (Hospitalization)
  Sender: FDA-Public Use
  Company Number: None

PATIENT
  Sex: Male

DRUGS (10)
  1. PULMOZYME [Suspect]
     Active Substance: DORNASE ALFA
     Indication: Cystic fibrosis
     Dosage: 2.5MG/2.5ML INHALE ONE VIAL VIA NEBULIZER DAILY
     Route: 055
     Dates: start: 20150828
  2. AQUADEKS DRO [Concomitant]
  3. CREON CAP [Concomitant]
  4. CYPROHEPTADINE HYDROCHLORIDE [Concomitant]
     Active Substance: CYPROHEPTADINE HYDROCHLORIDE
  5. FLONASE SPR [Concomitant]
  6. HYPERSAL NEB [Concomitant]
  7. MIRALAX POW NF [Concomitant]
  8. PREVACID [Concomitant]
     Active Substance: LANSOPRAZOLE
  9. PRILOSEC CAP [Concomitant]
  10. TRIKAFTA [Concomitant]
     Active Substance: ELEXACAFTOR\IVACAFTOR\TEZACAFTOR

REACTIONS (1)
  - COVID-19 [None]
